FAERS Safety Report 14728318 (Version 1)
Quarter: 2018Q2

REPORT INFORMATION
  Report Type: Spontaneous
  Country: US (occurrence: US)
  Receive Date: 20180402
  Receipt Date: 20180402
  Transmission Date: 20180711
  Serious: No
  Sender: FDA-Public Use
  Company Number: None

PATIENT
  Age: 75 Year
  Sex: Male

DRUGS (1)
  1. POMALYST [Suspect]
     Active Substance: POMALIDOMIDE
     Indication: PLASMA CELL MYELOMA
     Route: 048
     Dates: start: 20180219, end: 20180301

REACTIONS (7)
  - Syncope [None]
  - Atrial fibrillation [None]
  - Orthopnoea [None]
  - Fatigue [None]
  - Paraesthesia [None]
  - Acute myocardial infarction [None]
  - Dyspepsia [None]

NARRATIVE: CASE EVENT DATE: 20180301
